FAERS Safety Report 6769094-2 (Version None)
Quarter: 2010Q2

REPORT INFORMATION
  Report Type: 
  Country: None (occurrence: None)
  Receive Date: 20100615
  Receipt Date: 20100604
  Transmission Date: 20101027
  Serious: Yes (Hospitalization, Disabling)
  Sender: FDA-Public Use
  Company Number: CH-BAYER-201026631GPV

PATIENT
  Age: 38 Year
  Sex: Female
  Weight: 100 kg

DRUGS (6)
  1. YASMIN [Suspect]
     Indication: ORAL CONTRACEPTION
     Dosage: SEVERAL YEARS
     Route: 048
     Dates: start: 20040101, end: 20080520
  2. ELTROXIN [Concomitant]
     Indication: HYPOTHYROIDISM
     Dosage: TOTAL DAILY DOSE: 0.1 MG
  3. FLUOXETINE HCL [Concomitant]
  4. SYMBICORT [Concomitant]
  5. NASONEX [Concomitant]
  6. SIRDALUD [Concomitant]

REACTIONS (4)
  - CHEST PAIN [None]
  - DYSPNOEA [None]
  - HEARING IMPAIRED [None]
  - PULMONARY EMBOLISM [None]
